FAERS Safety Report 15241964 (Version 1)
Quarter: 2018Q3

REPORT INFORMATION
  Report Type: Spontaneous
  Country: IT (occurrence: IT)
  Receive Date: 20180806
  Receipt Date: 20180806
  Transmission Date: 20181010
  Serious: Yes (Other)
  Sender: FDA-Public Use
  Company Number: IT-AUROBINDO-AUR-APL-2018-033750

PATIENT
  Age: 27 Year
  Sex: Female

DRUGS (8)
  1. KEFORAL                            /00145501/ [Suspect]
     Active Substance: CEPHALEXIN
     Dosage: 5 % (IN PETROLATUM)
     Route: 061
  2. AMOXICILLIN. [Suspect]
     Active Substance: AMOXICILLIN
     Indication: PRODUCT USED FOR UNKNOWN INDICATION
     Dosage: UNK
     Route: 065
  3. AMPICILLIN [Suspect]
     Active Substance: AMPICILLIN
     Indication: PRODUCT USED FOR UNKNOWN INDICATION
     Dosage: UNK
     Route: 065
  4. DURACEF                            /00554701/ [Suspect]
     Active Substance: CEFADROXIL
     Dosage: 2 MG/ML (IN 0.9% SODIUM CHLORIDE)
     Route: 023
  5. PANACEF [Suspect]
     Active Substance: CEFACLOR
     Indication: PRODUCT USED FOR UNKNOWN INDICATION
     Dosage: 2 MG/ML (IN 0.9% SODIUM CHLORIDE)
     Route: 023
  6. DURACEF                            /00554701/ [Suspect]
     Active Substance: CEFADROXIL
     Indication: PRODUCT USED FOR UNKNOWN INDICATION
     Dosage: 5 % (IN PETROLATUM)
     Route: 061
  7. PANACEF [Suspect]
     Active Substance: CEFACLOR
     Dosage: 5 % (IN PETROLATUM)
     Route: 061
  8. KEFORAL                            /00145501/ [Suspect]
     Active Substance: CEPHALEXIN
     Indication: PRODUCT USED FOR UNKNOWN INDICATION
     Dosage: 2 MG/ML (IN 0.9% SODIUM CHLORIDE)
     Route: 023

REACTIONS (4)
  - Therapeutic product cross-reactivity [Unknown]
  - Oedema [Unknown]
  - Erythema [Unknown]
  - Type IV hypersensitivity reaction [Unknown]
